FAERS Safety Report 24057847 (Version 1)
Quarter: 2024Q3

REPORT INFORMATION
  Report Type: Spontaneous
  Country: US (occurrence: US)
  Receive Date: 20240707
  Receipt Date: 20240707
  Transmission Date: 20241017
  Serious: No
  Sender: ROCHE
  Company Number: US-CHEPLA-2024008173

PATIENT
  Age: 87 Year
  Sex: Female

DRUGS (4)
  1. KLONOPIN [Suspect]
     Active Substance: CLONAZEPAM
     Indication: Insomnia
     Route: 065
  2. KLONOPIN [Suspect]
     Active Substance: CLONAZEPAM
     Dosage: THE FIRST TIME SHE TRIED THE RECOMMENDATION OF HER DOCTOR WAS ON 23-JUN-2024
     Route: 065
     Dates: start: 20240623
  3. ZYPREXA [Suspect]
     Active Substance: OLANZAPINE
     Indication: Insomnia
     Route: 048
  4. ZYPREXA [Suspect]
     Active Substance: OLANZAPINE
     Dosage: THE FIRST TIME SHE TRIED THE RECOMMENDATION OF HER DOCTOR WAS ON 23-JUN-2024
     Route: 048
     Dates: start: 20240623

REACTIONS (4)
  - Decreased appetite [Unknown]
  - Dizziness [Unknown]
  - Headache [Unknown]
  - Product use in unapproved indication [Unknown]

NARRATIVE: CASE EVENT DATE: 20240623
